FAERS Safety Report 14196616 (Version 1)
Quarter: 2017Q4

REPORT INFORMATION
  Report Type: Spontaneous
  Country: FR (occurrence: FR)
  Receive Date: 20171116
  Receipt Date: 20171116
  Transmission Date: 20180321
  Serious: Yes (Other)
  Sender: FDA-Public Use
  Company Number: FR-MERCK KGAA-2034386

PATIENT
  Sex: Female

DRUGS (3)
  1. NOVOTHYROX [Suspect]
     Active Substance: LEVOTHYROXINE SODIUM
     Indication: PRODUCT USED FOR UNKNOWN INDICATION
     Dates: start: 201707
  2. INIPOMP [Concomitant]
     Active Substance: PANTOPRAZOLE SODIUM
  3. CORDARONE [Concomitant]
     Active Substance: AMIODARONE HYDROCHLORIDE

REACTIONS (9)
  - Weight increased [None]
  - Depression [None]
  - Angina pectoris [None]
  - Headache [None]
  - Blood thyroid stimulating hormone increased [None]
  - Bone pain [None]
  - Alopecia [None]
  - Apparent death [None]
  - Tendonitis [None]

NARRATIVE: CASE EVENT DATE: 2017
